FAERS Safety Report 4314676-0 (Version None)
Quarter: 2004Q1

REPORT INFORMATION
  Report Type: 
  Country: None (occurrence: None)
  Receive Date: 20040309
  Receipt Date: 20040309
  Transmission Date: 20041129
  Serious: Yes (Other)
  Sender: FDA-Public Use
  Company Number: None

PATIENT
  Age: 48 Year
  Sex: Female
  Weight: 58.9676 kg

DRUGS (1)
  1. DUCOSATE SOD 100 MG URL [Suspect]

REACTIONS (3)
  - CHEMICAL BURNS OF EYE [None]
  - EYE IRRITATION [None]
  - PHARMACEUTICAL PRODUCT COMPLAINT [None]
